FAERS Safety Report 17660594 (Version 3)
Quarter: 2021Q3

REPORT INFORMATION
  Report Type: Spontaneous
  Country: CA (occurrence: CA)
  Receive Date: 20200413
  Receipt Date: 20210915
  Transmission Date: 20211014
  Serious: Yes (Other)
  Sender: FDA-Public Use
  Company Number: CA-PFIZER INC-2019558630

PATIENT
  Age: 83 Year
  Sex: Female
  Weight: 82.4 kg

DRUGS (9)
  1. IBRANCE [Suspect]
     Active Substance: PALBOCICLIB
     Dosage: 100 MG, 1X/DAY (DAY 1?21 OF EACH CYCLE)
     Route: 048
     Dates: start: 2020
  2. PERINDOPRIL INDAPAMIDE RATIOPHARM [Concomitant]
     Active Substance: INDAPAMIDE\PERINDOPRIL
     Dosage: 4 MG/1.25MG, 1X/DAY
  3. FEMARA [Concomitant]
     Active Substance: LETROZOLE
     Indication: BREAST CANCER METASTATIC
     Dosage: 2.5 MG, 1X/DAY
     Route: 048
  4. IBRANCE [Suspect]
     Active Substance: PALBOCICLIB
     Dosage: 125 MG, ONCE DAILY FOR 21 DAYS IN A ROW, STOP FOR 14 DAYS
     Route: 048
     Dates: start: 20200305, end: 20200313
  5. LETROZOLE. [Concomitant]
     Active Substance: LETROZOLE
     Dosage: 2.5 MG, 1X/DAY
     Route: 048
     Dates: start: 201909
  6. VITAMIN D NOS [Concomitant]
     Active Substance: VITAMIN D NOS
     Dosage: 2000 IU, 1X/DAY (QD)
  7. IBRANCE [Suspect]
     Active Substance: PALBOCICLIB
     Indication: BREAST CANCER METASTATIC
     Dosage: 125 MG, ONCE DAILY FOR 21 DAYS IN A ROW, STOP FOR 14 DAYS
     Route: 048
     Dates: start: 20200108, end: 2020
  8. FEMARA [Concomitant]
     Active Substance: LETROZOLE
     Dosage: 2.5 MG, 1X/DAY TAKE 2.5MG BY MOUTH ONCE DAILY DISPENSE 90 DAYS
     Route: 048
     Dates: start: 20210902
  9. IBRANCE [Suspect]
     Active Substance: PALBOCICLIB
     Dosage: 125 MG, ONCE DAILY FOR 21 DAYS IN A ROW, STOP FOR 14 DAYS
     Route: 048
     Dates: start: 20200321, end: 2020

REACTIONS (5)
  - Renal impairment [Unknown]
  - Blood sodium decreased [Unknown]
  - Nausea [Unknown]
  - Vomiting [Unknown]
  - Hepatic enzyme increased [Unknown]

NARRATIVE: CASE EVENT DATE: 2020
